FAERS Safety Report 17978341 (Version 2)
Quarter: 2020Q3

REPORT INFORMATION
  Report Type: Spontaneous
  Country: GR (occurrence: GR)
  Receive Date: 20200703
  Receipt Date: 20200713
  Transmission Date: 20201103
  Serious: Yes (Hospitalization)
  Sender: FDA-Public Use
  Company Number: GR-BAUSCH-BL-2020-018649

PATIENT
  Age: 62 Year
  Sex: Female

DRUGS (4)
  1. PITAVA [Concomitant]
     Active Substance: PITAVASTATIN
     Indication: PRODUCT USED FOR UNKNOWN INDICATION
  2. TELMISARTAN. [Concomitant]
     Active Substance: TELMISARTAN
     Indication: HYPERTENSION
  3. RIFACOL [Suspect]
     Active Substance: RIFAXIMIN
     Indication: ENTERITIS
     Dosage: 2X3 DAILY
     Route: 048
     Dates: start: 20200430, end: 20200430
  4. TELMISARTAN. [Concomitant]
     Active Substance: TELMISARTAN
     Indication: HYPERLIPIDAEMIA

REACTIONS (2)
  - Hypersensitivity [Recovered/Resolved]
  - Prescribed overdose [Recovered/Resolved]

NARRATIVE: CASE EVENT DATE: 20200430
